FAERS Safety Report 5319654-0 (Version None)
Quarter: 2007Q2

REPORT INFORMATION
  Report Type: 
  Country: None (occurrence: None)
  Receive Date: 20070508
  Receipt Date: 20070503
  Transmission Date: 20071010
  Serious: Yes (Other)
  Sender: FDA-Public Use
  Company Number: PT-MERCK-0705PRT00001

PATIENT
  Age: 55 Year
  Sex: Female

DRUGS (5)
  1. SINGULAIR [Suspect]
     Indication: BRONCHOSPASM
     Route: 048
     Dates: start: 20070409, end: 20070426
  2. MOXIFLOXACIN HYDROCHLORIDE [Concomitant]
     Route: 065
  3. ACETYLCYSTEINE [Concomitant]
     Route: 065
  4. HYDROCHLOROTHIAZIDE AND VALSARTAN [Concomitant]
     Route: 065
  5. OMEPRAZOLE [Concomitant]
     Route: 065

REACTIONS (1)
  - ERYTHEMA [None]
